FAERS Safety Report 24837736 (Version 1)
Quarter: 2025Q1

REPORT INFORMATION
  Report Type: Spontaneous
  Country: US (occurrence: US)
  Receive Date: 20250113
  Receipt Date: 20250113
  Transmission Date: 20250408
  Serious: Yes (Other)
  Sender: SANOFI AVENTIS
  Company Number: US-SA-2025SA010450

PATIENT
  Age: 49 Year
  Sex: Female

DRUGS (17)
  1. DUPIXENT [Suspect]
     Active Substance: DUPILUMAB
     Indication: Asthma
     Route: 058
     Dates: start: 20240412
  2. FLUCONAZOLE [Concomitant]
     Active Substance: FLUCONAZOLE
  3. VITAMIN D3 [Concomitant]
     Active Substance: CHOLECALCIFEROL
  4. ADVAIR HFA [Concomitant]
     Active Substance: FLUTICASONE PROPIONATE\SALMETEROL XINAFOATE
  5. SERTRALINE HYDROCHLORIDE [Concomitant]
     Active Substance: SERTRALINE HYDROCHLORIDE
  6. MONTELUKAST [Concomitant]
     Active Substance: MONTELUKAST
  7. GABAPENTIN [Concomitant]
     Active Substance: GABAPENTIN
  8. CELEXA [Concomitant]
     Active Substance: CITALOPRAM HYDROBROMIDE
  9. WELLBUTRIN [Concomitant]
     Active Substance: BUPROPION HYDROCHLORIDE
  10. PROTOPIC [Concomitant]
     Active Substance: TACROLIMUS
  11. BENADRYL [Concomitant]
     Active Substance: DIPHENHYDRAMINE HYDROCHLORIDE
  12. MELATONIN [Concomitant]
     Active Substance: MELATONIN
  13. CALCIUM [Concomitant]
     Active Substance: CALCIUM
  14. PEPCID [Concomitant]
     Active Substance: FAMOTIDINE
  15. IRON [Concomitant]
     Active Substance: IRON
  16. METAMUCIL [Concomitant]
     Active Substance: PLANTAGO SEED
  17. ALEVE [Concomitant]
     Active Substance: NAPROXEN SODIUM

REACTIONS (4)
  - Cataract [Unknown]
  - Bronchitis [Recovering/Resolving]
  - Glucose tolerance impaired [Unknown]
  - Sinusitis [Recovering/Resolving]

NARRATIVE: CASE EVENT DATE: 20250108
